FAERS Safety Report 18304645 (Version 1)
Quarter: 2020Q3

REPORT INFORMATION
  Report Type: Report from Study
  Country: AU (occurrence: AU)
  Receive Date: 20200924
  Receipt Date: 20200924
  Transmission Date: 20201103
  Serious: Yes (Other)
  Sender: FDA-Public Use
  Company Number: AU-REGENERON PHARMACEUTICALS, INC.-2020-77948

PATIENT

DRUGS (2)
  1. EYLEA [Suspect]
     Active Substance: AFLIBERCEPT
     Indication: DIABETIC RETINAL OEDEMA
     Dosage: UNK; TOTAL NUMBER OF EYLEA DOSE IS UNK. DATE OF LAST DOSE OF EYLEA IS UNK (APPROXIMATELY 3 MONTHS AG
     Route: 031
  2. INSULIN [Concomitant]
     Active Substance: INSULIN NOS
     Indication: PRODUCT USED FOR UNKNOWN INDICATION
     Dosage: 48 U, QD

REACTIONS (10)
  - Malignant neoplasm of lacrimal duct [Not Recovered/Not Resolved]
  - Visual impairment [Unknown]
  - Weight increased [Unknown]
  - Tremor [Unknown]
  - Fall [Unknown]
  - Balance disorder [Not Recovered/Not Resolved]
  - Hypophagia [Unknown]
  - Dizziness [Unknown]
  - Skin laceration [Unknown]
  - Upper limb fracture [Unknown]

NARRATIVE: CASE EVENT DATE: 202006
